FAERS Safety Report 9119522 (Version 2)
Quarter: 2013Q1

REPORT INFORMATION
  Report Type: Spontaneous
  Country: US (occurrence: US)
  Receive Date: 20130207
  Receipt Date: 20130315
  Transmission Date: 20140127
  Serious: Yes (Other)
  Sender: FDA-Public Use
  Company Number: US-PURDUE-USA-2012-0096499

PATIENT
  Age: 60 None
  Sex: Male
  Weight: 106.12 kg

DRUGS (9)
  1. MS CONTIN TABLETS [Suspect]
     Indication: BACK PAIN
     Dosage: 30 MG, TID
     Dates: start: 2009
  2. MS CONTIN TABLETS [Suspect]
     Indication: NECK PAIN
  3. MS CONTIN TABLETS [Suspect]
     Indication: SPINAL PAIN
  4. MORPHINE SULFATE EXTENDED-RELEASE TABLETS [Suspect]
     Indication: BACK PAIN
     Dosage: 30 MG, TID
     Route: 048
     Dates: start: 20120901, end: 20121115
  5. MORPHINE SULFATE EXTENDED-RELEASE TABLETS [Suspect]
     Indication: NECK PAIN
     Dosage: UNK
     Route: 048
     Dates: start: 2003, end: 2006
  6. MORPHINE SULFATE EXTENDED-RELEASE TABLETS ` [Suspect]
     Indication: PAIN
  7. MORPHINE SULFATE [Suspect]
     Indication: BACK PAIN
     Dosage: 30 MG, TID
     Dates: start: 201206
  8. MORPHINE SULFATE [Suspect]
     Indication: NECK PAIN
     Dosage: 30 MG, TID
     Dates: start: 201207
  9. METFORMIN [Concomitant]
     Indication: PRODUCT USED FOR UNKNOWN INDICATION
     Dosage: 500 MG, UNK

REACTIONS (25)
  - Suicidal ideation [Unknown]
  - Intentional self-injury [Unknown]
  - Violence-related symptom [Unknown]
  - Dyspepsia [Recovered/Resolved]
  - Chest pain [Recovered/Resolved]
  - Abdominal distension [Unknown]
  - Pain [Unknown]
  - Abdominal pain [Unknown]
  - Vomiting [Unknown]
  - Unevaluable event [Unknown]
  - Respiratory disorder [Unknown]
  - Asthenia [Unknown]
  - Gastric disorder [Recovered/Resolved]
  - White blood cell count increased [Unknown]
  - Neutrophil count increased [Unknown]
  - Disturbance in attention [Unknown]
  - Abdominal discomfort [Unknown]
  - Intervertebral disc disorder [None]
  - Back injury [None]
  - Constipation [None]
  - Aspartate aminotransferase increased [None]
  - Alanine aminotransferase increased [None]
  - Hypophagia [None]
  - Alcohol use [None]
  - Refusal of treatment by patient [None]
